FAERS Safety Report 4652882-6 (Version None)
Quarter: 2005Q2

REPORT INFORMATION
  Report Type: 
  Country: None (occurrence: None)
  Receive Date: 20050502
  Receipt Date: 20050421
  Transmission Date: 20051028
  Serious: No
  Sender: FDA-Public Use
  Company Number: 2005PK00692

PATIENT
  Age: 75 Year
  Sex: Male

DRUGS (5)
  1. ZD1839 [Suspect]
     Indication: NON-SMALL CELL LUNG CANCER
     Dosage: 250 MG DAILY PO
     Route: 048
     Dates: start: 20050211, end: 20050422
  2. THROMBO ASS [Concomitant]
  3. COENAC [Concomitant]
  4. DIAMICRON [Concomitant]
  5. SORTIS [Concomitant]

REACTIONS (1)
  - FOLLICULITIS [None]
